FAERS Safety Report 8817030 (Version 1)
Quarter: 2012Q4

REPORT INFORMATION
  Report Type: Spontaneous
  Country: US (occurrence: None)
  Receive Date: 20121003
  Receipt Date: 20121003
  Transmission Date: 20130627
  Serious: Yes (Life-Threatening, Hospitalization, Disabling)
  Sender: FDA-Public Use
  Company Number: None

PATIENT
  Age: 37 Year
  Sex: Female
  Weight: 86.18 kg

DRUGS (2)
  1. ORTHO-CEPT [Suspect]
     Indication: ENDOMETRIOSIS
     Dosage: 1 pill every day for 4 mo po
     Route: 048
     Dates: start: 20070101, end: 20120414
  2. ORTHO-CEPT [Suspect]
     Indication: PROPHYLAXIS
     Dosage: 1 pill every day for 4 mo po
     Route: 048
     Dates: start: 20070101, end: 20120414

REACTIONS (7)
  - Asthma [None]
  - Deep vein thrombosis [None]
  - Pulmonary embolism [None]
  - Lung disorder [None]
  - Haemoptysis [None]
  - Increased upper airway secretion [None]
  - Productive cough [None]
